FAERS Safety Report 4821930-2 (Version None)
Quarter: 2005Q4

REPORT INFORMATION
  Report Type: 
  Country: None (occurrence: None)
  Receive Date: 20051103
  Receipt Date: 20051024
  Transmission Date: 20060501
  Serious: Yes (Hospitalization)
  Sender: FDA-Public Use
  Company Number: ES-2005-022056

PATIENT
  Age: 58 Year
  Sex: Male

DRUGS (1)
  1. ULTRAVIST 300 [Suspect]
     Dosage: 300 MG, 1 DOSE; INTRAVENOUS
     Route: 042
     Dates: start: 20050216, end: 20050216

REACTIONS (1)
  - LEUKOCYTOCLASTIC VASCULITIS [None]
